FAERS Safety Report 22633863 (Version 1)
Quarter: 2023Q2

REPORT INFORMATION
  Report Type: Spontaneous
  Country: US (occurrence: US)
  Receive Date: 20230623
  Receipt Date: 20230623
  Transmission Date: 20230721
  Serious: Yes (Hospitalization)
  Sender: FDA-Public Use
  Company Number: US-MYLANLABS-2023M1065733

PATIENT
  Age: 51 Year
  Sex: Female

DRUGS (9)
  1. TACROLIMUS [Suspect]
     Active Substance: TACROLIMUS
     Indication: Immunosuppressant drug therapy
     Dosage: UNK
     Route: 065
  2. TACROLIMUS [Suspect]
     Active Substance: TACROLIMUS
     Dosage: UNK, THERAPY RESTARTED
     Route: 065
  3. CYCLOSPORINE [Suspect]
     Active Substance: CYCLOSPORINE
     Indication: Calcineurin inhibitor induced pain syndrome
     Dosage: UNK
     Route: 065
  4. SODIUM CHLORIDE [Suspect]
     Active Substance: SODIUM CHLORIDE
     Indication: Hyponatraemia
     Dosage: UNK,THE WOMAN RECEIVED SODIUM-CHLORIDE BOLUSES
     Route: 042
  5. SIROLIMUS [Suspect]
     Active Substance: SIROLIMUS
     Indication: Calcineurin inhibitor induced pain syndrome
     Dosage: UNK
     Route: 065
  6. MYCOPHENOLATE MOFETIL [Concomitant]
     Active Substance: MYCOPHENOLATE MOFETIL
     Indication: Immunosuppression
     Dosage: UNK
     Route: 065
  7. THYMOCYTE IMMUNE GLOBULIN NOS [Concomitant]
     Active Substance: THYMOCYTE IMMUNE GLOBULIN NOS
     Indication: Immunosuppression
     Dosage: UNK
     Route: 065
  8. TOLVAPTAN [Concomitant]
     Active Substance: TOLVAPTAN
     Indication: Hyponatraemia
     Dosage: UNK
     Route: 065
  9. TOLVAPTAN [Concomitant]
     Active Substance: TOLVAPTAN
     Indication: Human herpesvirus 6 infection

REACTIONS (3)
  - Calcineurin inhibitor induced pain syndrome [Unknown]
  - Drug ineffective [Unknown]
  - Off label use [Unknown]
